FAERS Safety Report 8217406 (Version 4)
Quarter: 2012Q4

REPORT INFORMATION
  Report Type: 
  Country: US (occurrence: US)
  Receive Date: 20111101
  Receipt Date: 20121023
  Transmission Date: 20130627
  Serious: Yes (Hospitalization, Other)
  Sender: FDA-Public Use
  Company Number: US-BAYER-2011-102215

PATIENT
  Age: 30 Year
  Sex: Female
  Weight: 57 kg

DRUGS (10)
  1. YAZ [Suspect]
     Dosage: UNK
     Dates: start: 200907, end: 200909
  2. AVELOX [Concomitant]
     Indication: LUNG INFILTRATION
     Dosage: 400 mg, UNK
     Dates: start: 20091109
  3. AVELOX [Concomitant]
     Indication: PNEUMONIA
  4. PREDNISONE [Concomitant]
  5. TUSSIONEX [Concomitant]
     Indication: COUGH
     Dosage: UNK
     Route: 048
     Dates: start: 20091106
  6. LEVAQUIN [Concomitant]
     Dosage: UNK
     Route: 048
     Dates: start: 20091111
  7. ATIVAN [Concomitant]
  8. SOLUMEDROL [Concomitant]
     Route: 042
  9. PROPOFOL [Concomitant]
     Route: 042
  10. VANCOMYCIN [Concomitant]

REACTIONS (14)
  - Pulmonary embolism [None]
  - Injury [None]
  - Pneumonia [Recovering/Resolving]
  - Dyspnoea [None]
  - Pain [None]
  - Cough [None]
  - Muscle atrophy [None]
  - Hypoxia [None]
  - Hypercapnia [None]
  - Haemoptysis [None]
  - Chest discomfort [None]
  - Heart rate increased [None]
  - Emotional distress [None]
  - Pulmonary hypertension [None]
